FAERS Safety Report 18691678 (Version 4)
Quarter: 2025Q2

REPORT INFORMATION
  Report Type: Report from Study
  Country: GB (occurrence: GB)
  Receive Date: 20210102
  Receipt Date: 20250526
  Transmission Date: 20250717
  Serious: Yes (Death, Other)
  Sender: AUROBINDO
  Company Number: GB-CONSILIENT HEALTH-CONSIL20201202843

PATIENT
  Age: 55 Year
  Sex: Male

DRUGS (13)
  1. NORTRIPTYLINE [Suspect]
     Active Substance: NORTRIPTYLINE
     Indication: Product used for unknown indication
     Route: 065
  2. NORTRIPTYLINE [Suspect]
     Active Substance: NORTRIPTYLINE
     Route: 065
  3. PREGABALIN [Suspect]
     Active Substance: PREGABALIN
     Indication: Product used for unknown indication
     Route: 065
  4. PREGABALIN [Suspect]
     Active Substance: PREGABALIN
     Route: 065
  5. AMITRIPTYLINE [Suspect]
     Active Substance: AMITRIPTYLINE
     Indication: Product used for unknown indication
     Route: 065
  6. BENZOYLECGONINE [Suspect]
     Active Substance: BENZOYLECGONINE
     Indication: Product used for unknown indication
     Route: 065
  7. BENZOYLECGONINE [Suspect]
     Active Substance: BENZOYLECGONINE
     Route: 065
  8. COCAINE [Suspect]
     Active Substance: COCAINE
     Indication: Product used for unknown indication
     Route: 065
  9. COCAINE [Suspect]
     Active Substance: COCAINE
     Route: 065
  10. DIHYDROCODEINE [Suspect]
     Active Substance: DIHYDROCODEINE
     Indication: Product used for unknown indication
     Route: 065
  11. DIHYDROCODEINE [Suspect]
     Active Substance: DIHYDROCODEINE
     Route: 065
  12. ETIZOLAM [Suspect]
     Active Substance: ETIZOLAM
     Indication: Product used for unknown indication
     Route: 065
  13. ETIZOLAM [Suspect]
     Active Substance: ETIZOLAM
     Route: 065

REACTIONS (2)
  - Toxicity to various agents [Fatal]
  - Drug abuse [Unknown]
